FAERS Safety Report 8170141-4 (Version None)
Quarter: 2012Q1

REPORT INFORMATION
  Report Type: 
  Country: None (occurrence: None)
  Receive Date: 20120228
  Receipt Date: 20120222
  Transmission Date: 20120608
  Serious: Yes (Hospitalization)
  Sender: FDA-Public Use
  Company Number: CA-B.I. PHARMACEUTICALS,INC./RIDGEFIELD-2012-CN-00418CN

PATIENT
  Age: 89 Year
  Sex: Male
  Weight: 59 kg

DRUGS (5)
  1. HYDROCHLOROTHIAZIDE [Concomitant]
     Route: 065
  2. METOPROLOL TARTRATE [Concomitant]
     Route: 065
  3. ALLOPURINOL [Concomitant]
     Route: 065
  4. PRADAXA [Suspect]
     Dosage: 300 MG
     Route: 048
  5. COLCHICINE [Concomitant]
     Route: 065

REACTIONS (3)
  - LACERATION [None]
  - HAEMORRHAGE [None]
  - SYNCOPE [None]
